FAERS Safety Report 6448782-1 (Version None)
Quarter: 2009Q4

REPORT INFORMATION
  Report Type: 
  Country: None (occurrence: None)
  Receive Date: 20091120
  Receipt Date: 20091109
  Transmission Date: 20100525
  Serious: Yes (Other)
  Sender: FDA-Public Use
  Company Number: PHHO2009NL13940

PATIENT
  Age: 53 Year
  Sex: Female

DRUGS (3)
  1. OXCARBAZEPINE [Suspect]
  2. PREGABALIN [Concomitant]
  3. CLOBAZAM [Concomitant]

REACTIONS (2)
  - MEMORY IMPAIRMENT [None]
  - RESTLESSNESS [None]
